FAERS Safety Report 5210608-1 (Version None)
Quarter: 2007Q1

REPORT INFORMATION
  Report Type: 
  Country: None (occurrence: None)
  Receive Date: 20070117
  Receipt Date: 20070112
  Transmission Date: 20070707
  Serious: Yes (Other)
  Sender: FDA-Public Use
  Company Number: US-BRISTOL-MYERS SQUIBB COMPANY-13641063

PATIENT
  Age: 48 Year
  Sex: Female

DRUGS (2)
  1. DASATINIB [Suspect]
     Indication: CHRONIC MYELOID LEUKAEMIA
     Route: 048
     Dates: start: 20051102
  2. CELEXA [Concomitant]
     Route: 048
     Dates: start: 20060101

REACTIONS (2)
  - HYPOTHYROIDISM [None]
  - PAIN IN EXTREMITY [None]
